FAERS Safety Report 4980097-0 (Version None)
Quarter: 2006Q2

REPORT INFORMATION
  Report Type: 
  Country: None (occurrence: None)
  Receive Date: 20060421
  Receipt Date: 20051207
  Transmission Date: 20061013
  Serious: Yes (Hospitalization, Other)
  Sender: FDA-Public Use
  Company Number: US-MERCK-0512USA01303

PATIENT
  Age: 67 Year
  Sex: Female
  Weight: 53 kg

DRUGS (5)
  1. VIOXX [Suspect]
     Indication: ARTHRITIS
     Route: 048
     Dates: start: 20000401
  2. VIOXX [Suspect]
     Route: 048
     Dates: start: 20020101, end: 20040501
  3. IMDUR [Concomitant]
     Indication: ARTHRITIS
     Route: 065
  4. CARTIA (DILTIAZEM HYDROCHLORIDE) [Concomitant]
     Route: 065
  5. ZOCOR [Concomitant]
     Indication: DYSLIPIDAEMIA
     Route: 048

REACTIONS (19)
  - ACUTE MYOCARDIAL INFARCTION [None]
  - ANXIETY [None]
  - BILIARY DILATATION [None]
  - CHOLECYSTITIS ACUTE [None]
  - CLOSTRIDIUM COLITIS [None]
  - DEPRESSION [None]
  - DYSLIPIDAEMIA [None]
  - GASTROOESOPHAGEAL REFLUX DISEASE [None]
  - HEPATIC STEATOSIS [None]
  - HYPERTENSION [None]
  - ISCHAEMIC CARDIOMYOPATHY [None]
  - LACUNAR INFARCTION [None]
  - LIVER FUNCTION TEST ABNORMAL [None]
  - MYOCARDIAL INFARCTION [None]
  - OPTIC ISCHAEMIC NEUROPATHY [None]
  - OSTEOARTHRITIS [None]
  - SCIATICA [None]
  - VENTRICULAR DYSFUNCTION [None]
  - WEIGHT DECREASED [None]
